FAERS Safety Report 7969213-6 (Version None)
Quarter: 2011Q4

REPORT INFORMATION
  Report Type: 
  Country: None (occurrence: None)
  Receive Date: 20111209
  Receipt Date: 20111130
  Transmission Date: 20120403
  Serious: Yes (Other)
  Sender: FDA-Public Use
  Company Number: JP-ASTRAZENECA-2011SE71935

PATIENT
  Age: 84 Year
  Sex: Female

DRUGS (5)
  1. SEROQUEL [Suspect]
     Route: 048
     Dates: start: 20110701
  2. SEROQUEL [Suspect]
     Indication: AGITATION
     Route: 048
     Dates: start: 20110201, end: 20110701
  3. DIOVAN [Suspect]
     Indication: HYPERTENSION
     Route: 048
     Dates: start: 20110201
  4. SEROQUEL [Suspect]
     Indication: DELIRIUM
     Route: 048
     Dates: start: 20110201, end: 20110701
  5. SEROQUEL [Suspect]
     Route: 048
     Dates: start: 20110701

REACTIONS (2)
  - LABILE BLOOD PRESSURE [None]
  - OFF LABEL USE [None]
